FAERS Safety Report 23948563 (Version 2)
Quarter: 2025Q2

REPORT INFORMATION
  Report Type: Report from Study
  Country: US (occurrence: US)
  Receive Date: 20240607
  Receipt Date: 20250507
  Transmission Date: 20250716
  Serious: No
  Sender: AMGEN
  Company Number: US-AMGEN-USASP2024111322

PATIENT
  Sex: Female

DRUGS (1)
  1. TEPEZZA [Suspect]
     Active Substance: TEPROTUMUMAB-TRBW
     Indication: Product used for unknown indication
     Dosage: 1X Q3WK
     Route: 065

REACTIONS (4)
  - Stress [Unknown]
  - Blood pressure increased [Unknown]
  - Blood glucose increased [Unknown]
  - Muscle spasms [Unknown]
